FAERS Safety Report 19401354 (Version 1)
Quarter: 2021Q2

REPORT INFORMATION
  Report Type: Spontaneous
  Country: US (occurrence: US)
  Receive Date: 20210611
  Receipt Date: 20210611
  Transmission Date: 20210717
  Serious: Yes (Other)
  Sender: FDA-Public Use
  Company Number: US-SA-2021SA192021

PATIENT
  Age: 78 Year
  Sex: Male

DRUGS (1)
  1. GOLD BOND ORIGINAL STRENGTH POWDER [Suspect]
     Active Substance: MENTHOL\ZINC OXIDE
     Dosage: UNK

REACTIONS (2)
  - Product expiration date issue [Unknown]
  - Prostate cancer [Unknown]
